FAERS Safety Report 7731528-4 (Version None)
Quarter: 2011Q3

REPORT INFORMATION
  Report Type: 
  Country: None (occurrence: None)
  Receive Date: 20110906
  Receipt Date: 20110824
  Transmission Date: 20111222
  Serious: Yes (Other)
  Sender: FDA-Public Use
  Company Number: US-BAYER-2011-078015

PATIENT
  Sex: Male
  Weight: 68 kg

DRUGS (1)
  1. ALEVE (CAPLET) [Suspect]
     Indication: NEPHROLITHIASIS
     Dosage: 1 DF, QD
     Route: 048
     Dates: start: 20080101

REACTIONS (1)
  - NEPHROLITHIASIS [None]
